FAERS Safety Report 14729375 (Version 1)
Quarter: 2018Q2

REPORT INFORMATION
  Report Type: Spontaneous
  Country: DE (occurrence: DE)
  Receive Date: 20180406
  Receipt Date: 20180406
  Transmission Date: 20180711
  Serious: Yes (Other)
  Sender: FDA-Public Use
  Company Number: DE-SA-2018SA095422

PATIENT
  Age: 56 Year
  Sex: Female

DRUGS (2)
  1. INSULIN LISPRO [Suspect]
     Active Substance: INSULIN LISPRO
     Indication: TYPE 1 DIABETES MELLITUS
     Route: 058
  2. LANTUS [Concomitant]
     Active Substance: INSULIN GLARGINE

REACTIONS (3)
  - Nipple infection [Unknown]
  - Blood glucose fluctuation [Unknown]
  - Autoimmune thyroiditis [Unknown]
